FAERS Safety Report 26194996 (Version 1)
Quarter: 2025Q4

REPORT INFORMATION
  Report Type: Spontaneous
  Country: CA (occurrence: CA)
  Receive Date: 20251224
  Receipt Date: 20251224
  Transmission Date: 20260118
  Serious: Yes (Other)
  Sender: LANTHEUS MEDICAL IMAGING
  Company Number: CA-LANTHEUS-LMI-2025-01621

PATIENT
  Sex: Female

DRUGS (1)
  1. DEFINITY [Suspect]
     Active Substance: PERFLUTREN
     Indication: Product used for unknown indication
     Dosage: UNK

REACTIONS (2)
  - Hypoacusis [Unknown]
  - Deafness bilateral [Unknown]

NARRATIVE: CASE EVENT DATE: 20250101
